FAERS Safety Report 5532081-6 (Version None)
Quarter: 2007Q4

REPORT INFORMATION
  Report Type: 
  Country: None (occurrence: None)
  Receive Date: 20071203
  Receipt Date: 20071123
  Transmission Date: 20080405
  Serious: Yes (Life-Threatening)
  Sender: FDA-Public Use
  Company Number: B0497638A

PATIENT
  Age: 46 Year
  Sex: Male

DRUGS (1)
  1. AUGMENTIN '125' [Suspect]
     Indication: DRUG USE FOR UNKNOWN INDICATION
     Dosage: 1SAC SINGLE DOSE
     Route: 048
     Dates: start: 20070925, end: 20070925

REACTIONS (7)
  - ANAPHYLACTIC SHOCK [None]
  - ANGIOEDEMA [None]
  - DRUG HYPERSENSITIVITY [None]
  - FLUSHING [None]
  - HYPOTENSION [None]
  - PRURITUS [None]
  - URTICARIA [None]
